FAERS Safety Report 5033843-4 (Version None)
Quarter: 2006Q2

REPORT INFORMATION
  Report Type: 
  Country: None (occurrence: None)
  Receive Date: 20060518
  Receipt Date: 20050711
  Transmission Date: 20061013
  Serious: Yes (Other)
  Sender: FDA-Public Use
  Company Number: 2005033486

PATIENT
  Age: 19 Year
  Sex: Female
  Weight: 70.7611 kg

DRUGS (6)
  1. DEPO-PROVERA [Suspect]
     Indication: CONTRACEPTION
     Dosage: SEE IMAGE
     Route: 030
     Dates: start: 20040716, end: 20040716
  2. DEPO-PROVERA [Suspect]
     Indication: CONTRACEPTION
     Dosage: SEE IMAGE
     Route: 030
     Dates: start: 20041015, end: 20041015
  3. DEPO-PROVERA [Suspect]
     Indication: CONTRACEPTION
     Dosage: SEE IMAGE
     Route: 030
     Dates: start: 20050110, end: 20050110
  4. DEPO-PROVERA [Suspect]
  5. CANNABIS (CANNABIS) [Concomitant]
  6. IBUPROFEN [Concomitant]

REACTIONS (2)
  - METRORRHAGIA [None]
  - UNINTENDED PREGNANCY [None]
